FAERS Safety Report 19382935 (Version 1)
Quarter: 2021Q2

REPORT INFORMATION
  Report Type: Report from Study
  Country: FR (occurrence: FR)
  Receive Date: 20210607
  Receipt Date: 20210607
  Transmission Date: 20210717
  Serious: Yes (Hospitalization, Other)
  Sender: FDA-Public Use
  Company Number: FR-SHIRE-FR201711180

PATIENT
  Age: 54 Year
  Sex: Male
  Weight: 64 kg

DRUGS (14)
  1. TEDUGLUTIDE [Suspect]
     Active Substance: TEDUGLUTIDE
     Indication: SHORT-BOWEL SYNDROME
     Dosage: 3.3 MILLIGRAM, 7 DOSES PER WEEK
     Route: 065
     Dates: start: 20160317, end: 201810
  2. TEDUGLUTIDE [Suspect]
     Active Substance: TEDUGLUTIDE
     Dosage: 3.2 MG, 1X/DAY:QD
     Route: 058
     Dates: start: 20160317
  3. UVEDOSE [Concomitant]
     Active Substance: CHOLECALCIFEROL
     Indication: VITAMIN E
     Dosage: UNK, 1X/WEEK (1 AMPS)
     Route: 048
     Dates: start: 201701
  4. LEVOCARNIL [Concomitant]
     Active Substance: LEVOCARNITINE
     Indication: VITAMIN SUPPLEMENTATION
     Dosage: 1 GRAM, TID
     Route: 048
     Dates: start: 202104, end: 202105
  5. NORFLOXACIN [Concomitant]
     Active Substance: NORFLOXACIN
     Indication: ANTIBIOTIC THERAPY
     Dosage: 800 MILLIGRAM, QD
     Route: 048
     Dates: start: 202104
  6. TEDUGLUTIDE [Suspect]
     Active Substance: TEDUGLUTIDE
     Indication: SHORT-BOWEL SYNDROME
     Dosage: 3.3 MILLIGRAM, 7 DOSES PER WEEK
     Route: 065
     Dates: start: 20160317, end: 201810
  7. VITAMIN E [Concomitant]
     Active Substance: .ALPHA.-TOCOPHEROL
     Indication: VITAMIN SUPPLEMENTATION
     Dosage: 100 MILLIGRAM, QD
     Route: 048
     Dates: start: 202104
  8. TEDUGLUTIDE [Suspect]
     Active Substance: TEDUGLUTIDE
     Dosage: 3.2 MG, 1X/DAY:QD
     Route: 058
     Dates: start: 20160317
  9. VITAMIN C [Concomitant]
     Active Substance: ASCORBIC ACID
     Indication: VITAMIN SUPPLEMENTATION
     Dosage: 1 CAP, QD
     Route: 048
     Dates: start: 202104, end: 202105
  10. TEDUGLUTIDE [Suspect]
     Active Substance: TEDUGLUTIDE
     Indication: SHORT-BOWEL SYNDROME
     Dosage: 3.3 MILLIGRAM, 7 DOSES PER WEEK
     Route: 065
     Dates: start: 20160317, end: 201810
  11. TEDUGLUTIDE [Suspect]
     Active Substance: TEDUGLUTIDE
     Dosage: 3.2 MG, 1X/DAY:QD
     Route: 058
     Dates: start: 20160317
  12. TEDUGLUTIDE [Suspect]
     Active Substance: TEDUGLUTIDE
     Dosage: 3.2 MG, 1X/DAY:QD
     Route: 058
     Dates: start: 20160317
  13. TEDUGLUTIDE [Suspect]
     Active Substance: TEDUGLUTIDE
     Indication: SHORT-BOWEL SYNDROME
     Dosage: 3.3 MILLIGRAM, 7 DOSES PER WEEK
     Route: 065
     Dates: start: 20160317, end: 201810
  14. INEXIUM [Concomitant]
     Active Substance: ESOMEPRAZOLE
     Indication: PRODUCT USED FOR UNKNOWN INDICATION
     Dosage: 1 ML, 1X/DAY:QD
     Route: 048
     Dates: start: 201701

REACTIONS (3)
  - Nephrolithiasis [Recovered/Resolved]
  - Rectal polyp [Recovered/Resolved]
  - Gastric ulcer [Not Recovered/Not Resolved]

NARRATIVE: CASE EVENT DATE: 20170512
